FAERS Safety Report 7530558-5 (Version None)
Quarter: 2011Q2

REPORT INFORMATION
  Report Type: 
  Country: None (occurrence: None)
  Receive Date: 20110607
  Receipt Date: 20090528
  Transmission Date: 20111010
  Serious: Yes (Death, Other)
  Sender: FDA-Public Use
  Company Number: US-BAYER-200921764NA

PATIENT
  Age: 63 Year
  Sex: Female
  Weight: 66 kg

DRUGS (30)
  1. TRASYLOL [Suspect]
     Indication: CORONARY ARTERY BYPASS
     Dosage: 1 ML, ONCE, INTIAL TEST DOSE
     Route: 042
     Dates: start: 20050531, end: 20050531
  2. ACETAMINOPHEN [Concomitant]
     Dosage: AS NEEDED FOR PAIN
     Route: 048
  3. HEPARIN [Concomitant]
     Dosage: 10000 UNITS PUMP PRIME
  4. NITROGLYCERIN [Concomitant]
     Dosage: 50 MG/250 ML DEXTROSE 5%, TITRATED
     Route: 042
     Dates: start: 20050524
  5. FENTANYL [Concomitant]
     Dosage: UNK
     Route: 042
     Dates: start: 20050531, end: 20050531
  6. PLASMA [Concomitant]
     Dosage: 2 U, ONCE
     Route: 042
     Dates: start: 20050531
  7. ACETYLSALICYLIC ACID SRT [Concomitant]
     Dosage: 325 MG, QD
     Route: 048
     Dates: start: 19900101
  8. VASOTEC [Concomitant]
     Dosage: 2.5 MG, BID
     Route: 048
  9. ZOCOR [Concomitant]
     Dosage: 40 MG, QD
     Route: 048
  10. EPINEPHRINE [Concomitant]
     Dosage: UNK
     Route: 042
     Dates: start: 20050531, end: 20050531
  11. HEPARIN [Concomitant]
     Route: 058
  12. SODIUM BICARBONATE [Concomitant]
     Dosage: 200 MILLIEQUIVLANT
     Route: 042
     Dates: start: 20050531, end: 20050531
  13. HEPARIN [Concomitant]
     Dosage: 30000 UNITS
     Route: 042
     Dates: start: 20050531, end: 20050531
  14. SODIUM BICARBONATE [Concomitant]
     Dosage: 50 MILLIEQUIVLANT
     Route: 042
     Dates: start: 20050531, end: 20050531
  15. TRASYLOL [Suspect]
     Indication: INTRA-AORTIC BALLOON PLACEMENT
     Dosage: 200 ML LOADING DOSE WITH 50 ML/HOUR INFUSION
     Route: 042
     Dates: start: 20050531, end: 20050531
  16. LASIX [Concomitant]
     Dosage: 80 MG
     Route: 042
     Dates: start: 20050531, end: 20050531
  17. MILRINONE [Concomitant]
     Dosage: UNK
     Route: 042
     Dates: start: 20050531, end: 20050531
  18. PLATELETS [Concomitant]
     Dosage: 247 ML
     Route: 042
     Dates: start: 20050531
  19. CARDIZEM [Concomitant]
     Dosage: 120 MG, QD
     Route: 048
  20. HEPARIN [Concomitant]
     Dosage: PER PROTOCOL
     Route: 042
     Dates: start: 20050524
  21. INSULIN [Concomitant]
     Dosage: UNK
     Route: 042
     Dates: start: 20050531, end: 20050531
  22. ANCEF [Concomitant]
     Dosage: 2 GRAM
     Route: 042
     Dates: start: 20050531, end: 20050531
  23. VERSED [Concomitant]
     Dosage: 5 MG
     Route: 042
     Dates: start: 20050531, end: 20050531
  24. LEVOPHED [Concomitant]
     Dosage: UNK
     Route: 042
     Dates: start: 20050602
  25. BUMEX [Concomitant]
     Dosage: UNK
     Route: 042
     Dates: start: 20050602
  26. COREG [Concomitant]
     Dosage: 3.125 MG, BID
     Route: 048
  27. ATENOLOL [Concomitant]
     Dosage: 50 MG
     Route: 048
  28. LISINOPRIL [Concomitant]
     Dosage: 5 MG
     Route: 048
  29. DOPAMINE HCL [Concomitant]
     Dosage: UNK
     Route: 042
     Dates: start: 20050531, end: 20050531
  30. RED BLOOD CELLS [Concomitant]
     Dosage: 1 U, ONCE
     Route: 042
     Dates: start: 20050531, end: 20050531

REACTIONS (6)
  - INJURY [None]
  - RENAL INJURY [None]
  - RENAL FAILURE [None]
  - PAIN [None]
  - RENAL FAILURE ACUTE [None]
  - UNEVALUABLE EVENT [None]
